FAERS Safety Report 20554048 (Version 1)
Quarter: 2022Q1

REPORT INFORMATION
  Report Type: Spontaneous
  Country: CA (occurrence: CA)
  Receive Date: 20220304
  Receipt Date: 20220304
  Transmission Date: 20220423
  Serious: No
  Sender: FDA-Public Use
  Company Number: CA-LUPIN PHARMACEUTICALS INC.-2022-02661

PATIENT
  Age: 64 Year
  Sex: Female

DRUGS (3)
  1. GABAPENTIN [Suspect]
     Active Substance: GABAPENTIN
     Indication: Brachioradial pruritus
     Dosage: UNK
     Route: 065
  2. CAMPHOR [Suspect]
     Active Substance: CAMPHOR
     Indication: Brachioradial pruritus
     Dosage: UNK
     Route: 065
  3. DRONABINOL [Concomitant]
     Active Substance: DRONABINOL
     Indication: Pruritus
     Dosage: UNK
     Route: 065

REACTIONS (2)
  - Drug ineffective for unapproved indication [Unknown]
  - Off label use [Unknown]
